FAERS Safety Report 15237706 (Version 1)
Quarter: 2018Q3

REPORT INFORMATION
  Report Type: Spontaneous
  Country: ES (occurrence: ES)
  Receive Date: 20180803
  Receipt Date: 20180803
  Transmission Date: 20181010
  Serious: Yes (Other)
  Sender: FDA-Public Use
  Company Number: PHHY2018ES062473

PATIENT
  Age: 2 Year
  Sex: Male

DRUGS (1)
  1. IBUPROFEN. [Suspect]
     Active Substance: IBUPROFEN
     Indication: RESPIRATORY TRACT INFECTION
     Route: 065

REACTIONS (5)
  - Nasal obstruction [Unknown]
  - Angioedema [Unknown]
  - Product use in unapproved indication [Unknown]
  - Erythema [Unknown]
  - Rhinorrhoea [Unknown]
